FAERS Safety Report 11259051 (Version 1)
Quarter: 2015Q3

REPORT INFORMATION
  Report Type: Spontaneous
  Country: US (occurrence: None)
  Receive Date: 20150709
  Receipt Date: 20150709
  Transmission Date: 20151125
  Serious: Yes (Other)
  Sender: FDA-Public Use
  Company Number: None

PATIENT
  Age: 66 Year
  Sex: Female
  Weight: 88.45 kg

DRUGS (7)
  1. VITAMIN D [Concomitant]
     Active Substance: CHOLECALCIFEROL
  2. CYMBALTA [Concomitant]
     Active Substance: DULOXETINE HYDROCHLORIDE
  3. POTASSIUM [Concomitant]
     Active Substance: POTASSIUM
  4. BIG TEARS FOR EYES [Concomitant]
  5. FUROSEMIDE QUALITEST PHARMACEUTICALS [Suspect]
     Active Substance: FUROSEMIDE
     Indication: MENIERE^S DISEASE
     Route: 048
  6. MOLOXICAM [Concomitant]
  7. FUROSEMIDE. [Concomitant]
     Active Substance: FUROSEMIDE

REACTIONS (8)
  - No therapeutic response [None]
  - Balance disorder [None]
  - Product quality issue [None]
  - Product substitution issue [None]
  - Dizziness [None]
  - Fall [None]
  - Memory impairment [None]
  - Swelling [None]

NARRATIVE: CASE EVENT DATE: 20150607
